FAERS Safety Report 14007197 (Version 1)
Quarter: 2017Q3

REPORT INFORMATION
  Report Type: Spontaneous
  Country: US (occurrence: US)
  Receive Date: 20170923
  Receipt Date: 20170923
  Transmission Date: 20171128
  Serious: Yes (Other)
  Sender: FDA-Public Use
  Company Number: None

PATIENT
  Age: 48 Year
  Sex: Female
  Weight: 57.6 kg

DRUGS (6)
  1. PANTOPRAZOLE [Concomitant]
     Active Substance: PANTOPRAZOLE
  2. ACYCLOVIR. [Concomitant]
     Active Substance: ACYCLOVIR
  3. PROTEIN SHAKE [Concomitant]
  4. COMPAZINE [Concomitant]
     Active Substance: PROCHLORPERAZINE MALEATE
  5. DRONABINOL. [Suspect]
     Active Substance: DRONABINOL
     Indication: APPETITE DISORDER
     Dosage: ?          QUANTITY:1 CAPSULE(S);?
     Route: 048
     Dates: start: 20170920, end: 20170920
  6. CIPROFLOXIN [Concomitant]
     Active Substance: CIPROFLOXACIN

REACTIONS (7)
  - Tachycardia [None]
  - Panic attack [None]
  - Dizziness [None]
  - Panic reaction [None]
  - Burning sensation [None]
  - Presyncope [None]
  - Vision blurred [None]

NARRATIVE: CASE EVENT DATE: 20170920
